FAERS Safety Report 8838989 (Version 2)
Quarter: 2012Q4

REPORT INFORMATION
  Report Type: 
  Country: US (occurrence: US)
  Receive Date: 20121015
  Receipt Date: 20121102
  Transmission Date: 20130627
  Serious: Yes (Other)
  Sender: FDA-Public Use
  Company Number: US-BIOGENIDEC-2012BI044129

PATIENT
  Age: 47 Year
  Sex: Female

DRUGS (5)
  1. AVONEX [Suspect]
     Indication: MULTIPLE SCLEROSIS
     Route: 030
     Dates: start: 20010524
  2. AVONEX [Suspect]
     Indication: MULTIPLE SCLEROSIS
     Route: 030
     Dates: start: 201205
  3. PROZAC [Concomitant]
     Indication: DEPRESSION
  4. PROZAC [Concomitant]
     Indication: COGNITIVE DISORDER
  5. BUSPAR [Concomitant]
     Indication: ANXIETY
     Dates: start: 201208

REACTIONS (7)
  - Cerebrovascular accident [Recovered/Resolved]
  - Drug administered at inappropriate site [Recovered/Resolved]
  - Panic attack [Recovered/Resolved]
  - Stress [Not Recovered/Not Resolved]
  - Fear of needles [Recovered/Resolved]
  - Multiple sclerosis relapse [Recovered/Resolved]
  - Influenza like illness [Recovered/Resolved]
